FAERS Safety Report 10511907 (Version 1)
Quarter: 2014Q3

REPORT INFORMATION
  Report Type: Spontaneous
  Country: US (occurrence: None)
  Receive Date: 20140926
  Receipt Date: 20140926
  Transmission Date: 20150326
  Serious: No
  Sender: FDA-Public Use
  Company Number: 1000068385

PATIENT
  Age: 64 Year
  Sex: Female

DRUGS (3)
  1. HYDROCHLOROTHIAZIDE. [Concomitant]
     Active Substance: HYDROCHLOROTHIAZIDE
  2. LINZESS [Suspect]
     Active Substance: LINACLOTIDE
     Indication: IRRITABLE BOWEL SYNDROME
     Route: 048
     Dates: start: 20140605, end: 20140606
  3. ZANTAC [Concomitant]
     Active Substance: RANITIDINE HYDROCHLORIDE

REACTIONS (2)
  - Bone pain [None]
  - Abdominal distension [None]

NARRATIVE: CASE EVENT DATE: 20140605
